FAERS Safety Report 6031976-7 (Version None)
Quarter: 2009Q1

REPORT INFORMATION
  Report Type: 
  Country: None (occurrence: None)
  Receive Date: 20090107
  Receipt Date: 20081222
  Transmission Date: 20090719
  Serious: Yes (Other)
  Sender: FDA-Public Use
  Company Number: 001#1#2008-00567

PATIENT
  Sex: Male
  Weight: 80 kg

DRUGS (1)
  1. NEUPRO [Suspect]
     Dosage: (8 MG QD TRANSDERMAL)
     Route: 062
     Dates: start: 20070201

REACTIONS (5)
  - AKINESIA [None]
  - DRUG INEFFECTIVE [None]
  - DRUG WITHDRAWAL SYNDROME [None]
  - EXPIRED DRUG ADMINISTERED [None]
  - TREMOR [None]
